FAERS Safety Report 7653115-9 (Version None)
Quarter: 2011Q3

REPORT INFORMATION
  Report Type: 
  Country: None (occurrence: None)
  Receive Date: 20110803
  Receipt Date: 20110729
  Transmission Date: 20111222
  Serious: Yes (Other)
  Sender: FDA-Public Use
  Company Number: US-PFIZER INC-2011174475

PATIENT

DRUGS (1)
  1. CELEBREX [Suspect]
     Dosage: 200 MG, UNK

REACTIONS (3)
  - VISUAL IMPAIRMENT [None]
  - DIZZINESS [None]
  - SUPRAVENTRICULAR TACHYCARDIA [None]
